FAERS Safety Report 8620358-7 (Version None)
Quarter: 2012Q3

REPORT INFORMATION
  Report Type: 
  Country: None (occurrence: None)
  Receive Date: 20120820
  Receipt Date: 20120820
  Transmission Date: 20120928
  Serious: Yes (Life-Threatening, Hospitalization)
  Sender: FDA-Public Use
  Company Number: None

PATIENT
  Sex: Female
  Weight: 54.4316 kg

DRUGS (2)
  1. AVELOX [Suspect]
     Indication: PNEUMONIA
     Dosage: 400 MG  ONCE DAILY I V
     Route: 042
     Dates: start: 20111027, end: 20111101
  2. KETOROLAC [Concomitant]

REACTIONS (5)
  - NIGHTMARE [None]
  - FALL [None]
  - FEELING ABNORMAL [None]
  - HALLUCINATION [None]
  - ANXIETY [None]
